FAERS Safety Report 24865495 (Version 2)
Quarter: 2025Q1

REPORT INFORMATION
  Report Type: Spontaneous
  Country: US (occurrence: US)
  Receive Date: 20250121
  Receipt Date: 20250128
  Transmission Date: 20250408
  Serious: No
  Sender: ROCHE
  Company Number: US-ROCHE-10000181386

PATIENT
  Age: 52 Year
  Sex: Female

DRUGS (1)
  1. XOLAIR [Suspect]
     Active Substance: OMALIZUMAB
     Indication: Idiopathic urticaria
     Dosage: STRENGTH 300MG/2ML, ONGOING
     Route: 058

REACTIONS (4)
  - Off label use [Unknown]
  - No adverse event [Unknown]
  - Accidental exposure to product [Unknown]
  - Underdose [Unknown]
